FAERS Safety Report 17141651 (Version 2)
Quarter: 2020Q2

REPORT INFORMATION
  Report Type: Spontaneous
  Country: US (occurrence: US)
  Receive Date: 20191211
  Receipt Date: 20200412
  Transmission Date: 20200713
  Serious: Yes (Other)
  Sender: FDA-Public Use
  Company Number: US-SA-2019SA340105

PATIENT
  Age: 39 Year
  Sex: Female
  Weight: 79.3 kg

DRUGS (2)
  1. TAXOTERE [Suspect]
     Active Substance: DOCETAXEL
     Dosage: 600 MG
     Route: 042
     Dates: start: 20100112, end: 20100112
  2. TAXOTERE [Suspect]
     Active Substance: DOCETAXEL
     Indication: BREAST CANCER FEMALE
     Dosage: 600 MG
     Route: 042
     Dates: start: 20091026, end: 20091026

REACTIONS (2)
  - Alopecia [Recovering/Resolving]
  - Emotional distress [Unknown]
